FAERS Safety Report 11697140 (Version 2)
Quarter: 2016Q1

REPORT INFORMATION
  Report Type: Spontaneous
  Country: US (occurrence: US)
  Receive Date: 20151104
  Receipt Date: 20160114
  Transmission Date: 20160525
  Serious: No
  Sender: FDA-Public Use
  Company Number: US-SHIRE-US201513416

PATIENT
  Sex: Male
  Weight: 83.9 kg

DRUGS (1)
  1. LIALDA [Suspect]
     Active Substance: MESALAMINE
     Indication: COLITIS ULCERATIVE
     Dosage: 2.4 G, 1X/DAY:QD
     Route: 048
     Dates: start: 2015

REACTIONS (4)
  - Wrong technique in product usage process [Recovered/Resolved]
  - Abdominal discomfort [Unknown]
  - Acne [Unknown]
  - Drug ineffective [Unknown]
